FAERS Safety Report 6266425-7 (Version None)
Quarter: 2009Q3

REPORT INFORMATION
  Report Type: 
  Country: None (occurrence: None)
  Receive Date: 20090713
  Receipt Date: 20080814
  Transmission Date: 20100115
  Serious: Yes (Other)
  Sender: FDA-Public Use
  Company Number: AU-AVENTIS-200815863GDDC

PATIENT
  Age: 64 Year
  Sex: Female

DRUGS (3)
  1. ARAVA [Suspect]
     Route: 048
     Dates: start: 20071031
  2. METHOTREXATE SODIUM [Concomitant]
     Route: 048
  3. PREDNISONE [Concomitant]
     Dosage: DOSE: UNK
     Dates: end: 20070101

REACTIONS (2)
  - CERVICOBRACHIAL SYNDROME [None]
  - PARAESTHESIA [None]
